FAERS Safety Report 5464456-8 (Version None)
Quarter: 2007Q3

REPORT INFORMATION
  Report Type: 
  Country: None (occurrence: None)
  Receive Date: 20070921
  Receipt Date: 20070912
  Transmission Date: 20080115
  Serious: Yes (Hospitalization)
  Sender: FDA-Public Use
  Company Number: FR-AVENTIS-200712911FR

PATIENT
  Age: 49 Year
  Sex: Male

DRUGS (7)
  1. MALOCIDE                           /00112501/ [Suspect]
     Indication: CEREBRAL TOXOPLASMOSIS
     Route: 048
     Dates: start: 20070803, end: 20070813
  2. LOVENOX [Suspect]
     Indication: CEREBRAL TOXOPLASMOSIS
     Route: 058
     Dates: start: 20070803, end: 20070814
  3. ADIAZINE [Suspect]
     Indication: CEREBRAL TOXOPLASMOSIS
     Route: 048
     Dates: start: 20070803, end: 20070813
  4. ACIDE FOLIQUE [Suspect]
     Indication: PROPHYLAXIS
     Route: 048
     Dates: start: 20070803, end: 20070814
  5. VITAMINE PP [Concomitant]
     Route: 042
     Dates: start: 20070803
  6. VITAMINE B1 [Concomitant]
     Route: 042
     Dates: start: 20070803
  7. VITAMINE B6 [Concomitant]
     Route: 042
     Dates: start: 20070803

REACTIONS (3)
  - CYTOLYTIC HEPATITIS [None]
  - PYREXIA [None]
  - RASH [None]
